FAERS Safety Report 16085872 (Version 1)
Quarter: 2019Q1

REPORT INFORMATION
  Report Type: Spontaneous
  Country: HR (occurrence: HR)
  Receive Date: 20190318
  Receipt Date: 20190318
  Transmission Date: 20190418
  Serious: Yes (Other)
  Sender: FDA-Public Use
  Company Number: HR-BAYER-2019-052269

PATIENT
  Sex: Female

DRUGS (1)
  1. STIVARGA [Suspect]
     Active Substance: REGORAFENIB
     Indication: COLORECTAL CANCER METASTATIC
     Dosage: UNK
     Dates: start: 201808, end: 201812

REACTIONS (3)
  - Rash maculo-papular [Recovered/Resolved]
  - Palmar-plantar erythrodysaesthesia syndrome [None]
  - General physical health deterioration [None]

NARRATIVE: CASE EVENT DATE: 2018
